FAERS Safety Report 7461219-9 (Version None)
Quarter: 2011Q2

REPORT INFORMATION
  Report Type: 
  Country: None (occurrence: None)
  Receive Date: 20110505
  Receipt Date: 20110427
  Transmission Date: 20111010
  Serious: Yes (Hospitalization, Other)
  Sender: FDA-Public Use
  Company Number: US-ASTRAZENECA-2004UW09477

PATIENT
  Age: 80 Year
  Sex: Female
  Weight: 81.6 kg

DRUGS (6)
  1. CARDIZEM [Concomitant]
  2. ASPIRIN [Concomitant]
  3. CRESTOR [Suspect]
     Indication: HYPERCHOLESTEROLAEMIA
     Route: 048
     Dates: start: 20040501, end: 20040505
  4. CRESTOR [Suspect]
     Route: 048
  5. LEVOTHROID [Concomitant]
  6. LOPRESSOR [Concomitant]

REACTIONS (3)
  - HEADACHE [None]
  - ARTHRALGIA [None]
  - CARDIAC OPERATION [None]
